FAERS Safety Report 5460567-1 (Version None)
Quarter: 2007Q3

REPORT INFORMATION
  Report Type: 
  Country: None (occurrence: None)
  Receive Date: 20070919
  Receipt Date: 20070906
  Transmission Date: 20080115
  Serious: Yes (Other)
  Sender: FDA-Public Use
  Company Number: AU-ELI_LILLY_AND_COMPANY-AU200610005553

PATIENT
  Age: 23 Year
  Sex: Female

DRUGS (3)
  1. ZYPREXA [Suspect]
     Indication: BIPOLAR DISORDER
     Dosage: 5 MG, DAILY (1/D)
     Route: 048
     Dates: start: 20070220
  2. ELEVIT [Concomitant]
     Indication: PREGNANCY
     Dosage: 1 D/F, DAILY (1/D)
     Route: 048
     Dates: start: 20061001
  3. TEMAZE [Concomitant]
     Dosage: 1 D/F, AS NEEDED
     Route: 048
     Dates: start: 20070206

REACTIONS (4)
  - ANTEPARTUM HAEMORRHAGE [None]
  - CAESAREAN SECTION [None]
  - DRUG EXPOSURE DURING PREGNANCY [None]
  - PREMATURE SEPARATION OF PLACENTA [None]
